FAERS Safety Report 13579020 (Version 3)
Quarter: 2017Q3

REPORT INFORMATION
  Report Type: Spontaneous
  Country: BR (occurrence: BR)
  Receive Date: 20170524
  Receipt Date: 20170727
  Transmission Date: 20171127
  Serious: Yes (Other)
  Sender: FDA-Public Use
  Company Number: BR-ALEXION-A201705709

PATIENT
  Sex: Female

DRUGS (2)
  1. SOLIRIS [Suspect]
     Active Substance: ECULIZUMAB
     Indication: HAEMOLYTIC URAEMIC SYNDROME
     Dosage: 900 MG, QW
     Route: 042
     Dates: start: 20170208, end: 20170301
  2. SOLIRIS [Suspect]
     Active Substance: ECULIZUMAB
     Dosage: 1200 MG, Q2W
     Route: 042
     Dates: start: 20170308

REACTIONS (8)
  - Platelet count decreased [Recovered/Resolved]
  - Blood urea increased [Unknown]
  - Throat irritation [Unknown]
  - Cough [Unknown]
  - Haemoglobin decreased [Unknown]
  - Immunosuppression [Recovered/Resolved]
  - Oropharyngeal pain [Unknown]
  - Blood thyroid stimulating hormone increased [Unknown]
